FAERS Safety Report 18841609 (Version 1)
Quarter: 2021Q1

REPORT INFORMATION
  Report Type: Spontaneous
  Country: FR (occurrence: FR)
  Receive Date: 20210203
  Receipt Date: 20210203
  Transmission Date: 20210419
  Serious: Yes (Death)
  Sender: FDA-Public Use
  Company Number: FR-ALLERGAN-2104672US

PATIENT
  Sex: Female

DRUGS (6)
  1. MORPHINE SULFATE UNK [Suspect]
     Active Substance: MORPHINE SULFATE
     Indication: INTENTIONAL PRODUCT MISUSE
     Dosage: UNK
     Route: 065
     Dates: end: 2019
  2. DIHYDROCODEINE [Suspect]
     Active Substance: DIHYDROCODEINE
     Indication: INTENTIONAL PRODUCT MISUSE
     Dosage: UNK
     Route: 065
     Dates: end: 2019
  3. PARACETAMOL [Suspect]
     Active Substance: ACETAMINOPHEN
     Indication: INTENTIONAL PRODUCT MISUSE
     Dosage: UNK
     Route: 065
     Dates: end: 2019
  4. CITALOPRAM HYDROBROMIDE ? BP [Suspect]
     Active Substance: CITALOPRAM HYDROBROMIDE
     Indication: INTENTIONAL PRODUCT MISUSE
     Dosage: UNK
     Route: 065
     Dates: end: 2019
  5. QUETIAPINE. [Suspect]
     Active Substance: QUETIAPINE
     Indication: INTENTIONAL PRODUCT MISUSE
     Dosage: UNK
     Route: 065
     Dates: end: 2019
  6. CODEINE [Suspect]
     Active Substance: CODEINE
     Indication: INTENTIONAL PRODUCT MISUSE
     Dosage: UNK
     Route: 065
     Dates: end: 2019

REACTIONS (2)
  - Poisoning deliberate [Fatal]
  - Respiratory depression [Fatal]
